FAERS Safety Report 8248364-5 (Version None)
Quarter: 2012Q1

REPORT INFORMATION
  Report Type: 
  Country: None (occurrence: None)
  Receive Date: 20120330
  Receipt Date: 20120325
  Transmission Date: 20120608
  Serious: Yes (Other)
  Sender: FDA-Public Use
  Company Number: US-ABBOTT-12P-163-0918556-00

PATIENT
  Age: 23 Year
  Sex: Female

DRUGS (17)
  1. SINGULAIR [Concomitant]
     Indication: PRODUCT USED FOR UNKNOWN INDICATION
  2. TORADOL [Concomitant]
     Indication: MIGRAINE
  3. PERCOCET [Concomitant]
     Indication: PRODUCT USED FOR UNKNOWN INDICATION
     Dosage: 5/325MG
  4. ZINC SULFATE [Concomitant]
     Indication: PRODUCT USED FOR UNKNOWN INDICATION
  5. FOLIC ACID [Concomitant]
     Indication: PRODUCT USED FOR UNKNOWN INDICATION
  6. KLONOPIN [Concomitant]
     Indication: PRODUCT USED FOR UNKNOWN INDICATION
  7. HUMIRA [Suspect]
     Indication: RHEUMATOID ARTHRITIS
     Dates: start: 20120311
  8. BIOTIN [Concomitant]
     Indication: ALOPECIA
  9. VITAMIN D [Concomitant]
     Indication: VITAMIN D DECREASED
  10. MULTI-VITAMINS [Concomitant]
     Indication: PRODUCT USED FOR UNKNOWN INDICATION
  11. MAXALT [Concomitant]
     Indication: MIGRAINE
  12. PROZAC [Concomitant]
     Indication: PRODUCT USED FOR UNKNOWN INDICATION
  13. OMEPRAZOLE [Concomitant]
     Indication: GASTROOESOPHAGEAL REFLUX DISEASE
  14. ALBUTEROL [Concomitant]
     Indication: PRODUCT USED FOR UNKNOWN INDICATION
  15. TRAMADOL HCL [Concomitant]
     Indication: PRODUCT USED FOR UNKNOWN INDICATION
  16. ARAVA [Concomitant]
     Indication: PRODUCT USED FOR UNKNOWN INDICATION
  17. ZOFRAN [Concomitant]
     Indication: NAUSEA

REACTIONS (9)
  - NIGHT SWEATS [None]
  - CROHN'S DISEASE [None]
  - HEADACHE [None]
  - DYSPNOEA [None]
  - URINARY TRACT INFECTION [None]
  - BACK PAIN [None]
  - IRRITABLE BOWEL SYNDROME [None]
  - CHILLS [None]
  - INFLUENZA LIKE ILLNESS [None]
